FAERS Safety Report 24254054 (Version 1)
Quarter: 2024Q3

REPORT INFORMATION
  Report Type: Spontaneous
  Country: US (occurrence: US)
  Receive Date: 20240827
  Receipt Date: 20240827
  Transmission Date: 20241016
  Serious: Yes (Death, Hospitalization, Other)
  Sender: BIOVITRUM
  Company Number: US-BIOVITRUM-2024-US-011274

PATIENT
  Age: 7 Decade
  Sex: Male

DRUGS (4)
  1. PACRITINIB [Suspect]
     Active Substance: PACRITINIB
     Indication: Myelodysplastic syndrome
     Dosage: TWICE DAILY
  2. PACRITINIB [Suspect]
     Active Substance: PACRITINIB
     Indication: Myelofibrosis
     Dosage: DAILY
  3. PACRITINIB [Suspect]
     Active Substance: PACRITINIB
     Dosage: 3 TIMES A WEEK
  4. POSACONAZOLE [Suspect]
     Active Substance: POSACONAZOLE
     Indication: Prophylaxis

REACTIONS (9)
  - Neutropenia [Unknown]
  - Dyspnoea [Not Recovered/Not Resolved]
  - Cough [Not Recovered/Not Resolved]
  - Oedema peripheral [Not Recovered/Not Resolved]
  - Off label use [Recovered/Resolved]
  - Bacteraemia [Unknown]
  - Pericardial effusion [Unknown]
  - Septic shock [Fatal]
  - Drug interaction [Unknown]
